FAERS Safety Report 5823130-6 (Version None)
Quarter: 2008Q3

REPORT INFORMATION
  Report Type: 
  Country: None (occurrence: None)
  Receive Date: 20080725
  Receipt Date: 20080423
  Transmission Date: 20090109
  Serious: Yes (Life-Threatening)
  Sender: FDA-Public Use
  Company Number: US-MERCK-0804USA03967

PATIENT
  Age: 33 Year
  Sex: Male

DRUGS (2)
  1. ISENTRESS [Suspect]
     Indication: HIV INFECTION
     Route: 048
     Dates: start: 20071129, end: 20080311
  2. [THERAPY UNSPECIFIED] [Concomitant]
     Indication: ANTIRETROVIRAL THERAPY
     Route: 065
     Dates: end: 20080311

REACTIONS (2)
  - DEPRESSION [None]
  - SUICIDAL IDEATION [None]
